FAERS Safety Report 22113922 (Version 1)
Quarter: 2023Q1

REPORT INFORMATION
  Report Type: Spontaneous
  Country: DE (occurrence: DE)
  Receive Date: 20230320
  Receipt Date: 20230320
  Transmission Date: 20230418
  Serious: Yes (Hospitalization)
  Sender: FDA-Public Use
  Company Number: DE-JNJFOC-20230314594

PATIENT
  Age: 9 Decade
  Sex: Male
  Weight: 87 kg

DRUGS (3)
  1. LENALIDOMIDE [Suspect]
     Active Substance: LENALIDOMIDE
     Indication: Plasma cell myeloma
     Dosage: 15 MG (LAST DOSE BEFORE SAE: 24 JAN 2023)
     Route: 048
     Dates: start: 20221205
  2. DEXAMETHASONE [Suspect]
     Active Substance: DEXAMETHASONE
     Indication: Plasma cell myeloma
     Dosage: 20 MG (LAST DOSE BEFORE SAE:24 JAN 2023)
     Route: 048
     Dates: start: 20221205
  3. DARZALEX [Suspect]
     Active Substance: DARATUMUMAB
     Indication: Plasma cell myeloma
     Dosage: 1800 MG (LAST DOSE BEFORE SAE: 24 JAN 2023)
     Route: 058
     Dates: start: 20221205

REACTIONS (1)
  - Pneumonia [Recovered/Resolved]

NARRATIVE: CASE EVENT DATE: 20230127
